FAERS Safety Report 5291991-8 (Version None)
Quarter: 2007Q2

REPORT INFORMATION
  Report Type: 
  Country: None (occurrence: None)
  Receive Date: 20070406
  Receipt Date: 20070406
  Transmission Date: 20071010
  Serious: Yes (Hospitalization)
  Sender: FDA-Public Use
  Company Number: None

PATIENT
  Age: 84 Year
  Sex: Male

DRUGS (1)
  1. VICODIN [Suspect]
     Indication: PAIN
     Dosage: 1-2   Q 4-6H

REACTIONS (1)
  - ABDOMINAL DISTENSION [None]
